FAERS Safety Report 15715171 (Version 1)
Quarter: 2018Q4

REPORT INFORMATION
  Report Type: Spontaneous
  Country: US (occurrence: US)
  Receive Date: 20181212
  Receipt Date: 20181212
  Transmission Date: 20190205
  Serious: No
  Sender: FDA-Public Use
  Company Number: US-ENDO PHARMACEUTICALS INC-2018-015353

PATIENT
  Age: 51 Year
  Sex: Male
  Weight: 95.24 kg

DRUGS (2)
  1. TESTIM [Suspect]
     Active Substance: TESTOSTERONE
     Indication: BLOOD TESTOSTERONE DECREASED
     Dosage: 50 MG, ONE TUBE ON ALTERNATING SHOULDER EVERY OTHER DAY
     Route: 062
     Dates: start: 20180118
  2. HYDROCORTISONE TABLETS [Concomitant]
     Active Substance: HYDROCORTISONE
     Indication: HORMONE REPLACEMENT THERAPY

REACTIONS (4)
  - Dizziness [Not Recovered/Not Resolved]
  - Product quality issue [Unknown]
  - Product odour abnormal [Not Recovered/Not Resolved]
  - Wrong technique in product usage process [Unknown]

NARRATIVE: CASE EVENT DATE: 201801
